FAERS Safety Report 9359756 (Version 10)
Quarter: 2018Q4

REPORT INFORMATION
  Report Type: Report from Study
  Country: CA (occurrence: CA)
  Receive Date: 20130621
  Receipt Date: 20181018
  Transmission Date: 20190205
  Serious: Yes (Other)
  Sender: FDA-Public Use
  Company Number: CA-ROCHE-1155099

PATIENT
  Age: 65 Year
  Sex: Female
  Weight: 63.5 kg

DRUGS (16)
  1. METFORMIN [Concomitant]
     Active Substance: METFORMIN HYDROCHLORIDE
  2. FOSAVANCE [Concomitant]
     Active Substance: ALENDRONATE SODIUM\CHOLECALCIFEROL
  3. ELAVIL [Concomitant]
     Active Substance: AMITRIPTYLINE HYDROCHLORIDE
  4. PREDNISONE. [Concomitant]
     Active Substance: PREDNISONE
  5. TYLENOL [Concomitant]
     Active Substance: ACETAMINOPHEN
     Route: 048
     Dates: start: 20121109
  6. SOLU-MEDROL [Concomitant]
     Active Substance: METHYLPREDNISOLONE SODIUM SUCCINATE
     Route: 042
     Dates: start: 20121109
  7. RITUXAN [Suspect]
     Active Substance: RITUXIMAB
     Indication: SJOGREN^S SYNDROME
     Dosage: DAY 1 AND 15, LAST DOSE ON 26/JUN/2013
     Route: 042
     Dates: start: 20121026
  8. SENOKOT [Concomitant]
     Active Substance: SENNOSIDES
  9. ARTHROTEC FORTE [Concomitant]
     Active Substance: DICLOFENAC SODIUM\MISOPROSTOL
  10. PROCYTOX [Concomitant]
     Active Substance: CYCLOPHOSPHAMIDE
  11. LECITHIN [Concomitant]
     Active Substance: LECITHIN
  12. IBUPROFEN. [Concomitant]
     Active Substance: IBUPROFEN
     Indication: PAIN
     Route: 065
  13. BENADRYL [Concomitant]
     Active Substance: DIPHENHYDRAMINE HYDROCHLORIDE
     Route: 048
     Dates: start: 20121109, end: 20121109
  14. BETAMETHASONE SODIUM PHOSPHATE/GENTAMICIN SULFATE [Concomitant]
  15. OXYBUTYNIN. [Concomitant]
     Active Substance: OXYBUTYNIN CHLORIDE
  16. ASA [Concomitant]
     Active Substance: ASPIRIN

REACTIONS (22)
  - Ocular hyperaemia [Not Recovered/Not Resolved]
  - Ear discomfort [Recovered/Resolved]
  - Pharyngeal hypoaesthesia [Recovered/Resolved]
  - Cough [Not Recovered/Not Resolved]
  - Emotional distress [Recovered/Resolved]
  - Pneumonia [Unknown]
  - Dyspnoea [Unknown]
  - Somnolence [Recovering/Resolving]
  - Renal disorder [Unknown]
  - Infusion related reaction [Recovered/Resolved]
  - Somnolence [Recovered/Resolved]
  - Ear pain [Recovered/Resolved]
  - Neoplasm malignant [Unknown]
  - Oxygen saturation decreased [Recovering/Resolving]
  - Chronic obstructive pulmonary disease [Unknown]
  - Hypotension [Recovering/Resolving]
  - Bronchitis [Unknown]
  - Product use in unapproved indication [Unknown]
  - Fungal infection [Unknown]
  - Pain [Not Recovered/Not Resolved]
  - Malaise [Unknown]
  - Throat irritation [Recovered/Resolved]

NARRATIVE: CASE EVENT DATE: 20121109
